FAERS Safety Report 6089453-3 (Version None)
Quarter: 2009Q1

REPORT INFORMATION
  Report Type: 
  Country: None (occurrence: None)
  Receive Date: 20090220
  Receipt Date: 20090220
  Transmission Date: 20090719
  Serious: Yes (Life-Threatening, Other)
  Sender: FDA-Public Use
  Company Number: None

PATIENT
  Age: 60 Year
  Sex: Female
  Weight: 120.2032 kg

DRUGS (2)
  1. CYMBALTA [Suspect]
     Indication: DIABETIC NEUROPATHY
     Dosage: 60MGS ONE CAPSULE DAILY PO
     Route: 048
     Dates: start: 20081024, end: 20090213
  2. CYMBALTA [Suspect]
     Indication: FIBROMYALGIA
     Dosage: 60MGS ONE CAPSULE DAILY PO
     Route: 048
     Dates: start: 20081024, end: 20090213

REACTIONS (11)
  - ABASIA [None]
  - ABDOMINAL PAIN [None]
  - DEPRESSION [None]
  - DIARRHOEA [None]
  - FATIGUE [None]
  - MALAISE [None]
  - NAUSEA [None]
  - PARAESTHESIA [None]
  - PERSONALITY CHANGE [None]
  - SUICIDAL IDEATION [None]
  - THINKING ABNORMAL [None]
